FAERS Safety Report 7603130-6 (Version None)
Quarter: 2011Q3

REPORT INFORMATION
  Report Type: 
  Country: None (occurrence: None)
  Receive Date: 20110712
  Receipt Date: 20110630
  Transmission Date: 20111222
  Serious: Yes (Death, Hospitalization, Other)
  Sender: FDA-Public Use
  Company Number: CA-ELI_LILLY_AND_COMPANY-CA201106009027

PATIENT
  Sex: Male

DRUGS (10)
  1. ZYPREXA [Suspect]
     Indication: INTERMITTENT EXPLOSIVE DISORDER
     Dosage: 2.5 MG, EACH MORNING
     Dates: start: 20031105
  2. FLUOXETINE [Concomitant]
  3. VENLAFAXINE [Concomitant]
  4. ENALAPRIL MALEATE [Concomitant]
  5. LORAZEPAM [Concomitant]
  6. METOPROLOL [Concomitant]
  7. PAROXETINE HCL [Concomitant]
  8. FLUVOXAMINE [Concomitant]
  9. ZYPREXA [Suspect]
     Dosage: 2.5 MG, BID
  10. ZYPREXA [Suspect]
     Dosage: 5 MG, QD

REACTIONS (7)
  - PNEUMONIA ASPIRATION [None]
  - HAEMATOCHEZIA [None]
  - HYPERTENSION [None]
  - TYPE 2 DIABETES MELLITUS [None]
  - HYPERCHOLESTEROLAEMIA [None]
  - WEIGHT INCREASED [None]
  - PANCREATITIS [None]
